FAERS Safety Report 8068512-X (Version None)
Quarter: 2012Q1

REPORT INFORMATION
  Report Type: 
  Country: None (occurrence: None)
  Receive Date: 20120124
  Receipt Date: 20111102
  Transmission Date: 20120608
  Serious: No
  Sender: FDA-Public Use
  Company Number: US-AMGEN-USASP2011056958

PATIENT
  Age: 79 Year
  Sex: Female

DRUGS (10)
  1. IBUPROFEN [Concomitant]
  2. ZANTAC 150 MAXIMUM STRENGTH [Concomitant]
     Dates: start: 20110101, end: 20110101
  3. ZINC SULFATE [Concomitant]
  4. MULTIVITAMIN                       /00097801/ [Concomitant]
  5. PRILOSEC [Concomitant]
     Dates: start: 20110101
  6. CALCIUM [Concomitant]
  7. VITAMIN D [Concomitant]
  8. VOLTAREN [Concomitant]
  9. VITAMIN E                          /00110501/ [Concomitant]
  10. PROLIA [Suspect]
     Indication: OSTEOPOROSIS POSTMENOPAUSAL
     Dosage: 60 MG, Q6MO
     Dates: start: 20110117

REACTIONS (2)
  - DYSPEPSIA [None]
  - NON-CARDIAC CHEST PAIN [None]
